FAERS Safety Report 5783170-2 (Version None)
Quarter: 2008Q2

REPORT INFORMATION
  Report Type: 
  Country: None (occurrence: None)
  Receive Date: 20080619
  Receipt Date: 20080604
  Transmission Date: 20081010
  Serious: Yes (Disabling)
  Sender: FDA-Public Use
  Company Number: 230002M08FRA

PATIENT
  Age: 25 Year
  Sex: Female
  Weight: 50 kg

DRUGS (3)
  1. REBIF [Suspect]
     Indication: MULTIPLE SCLEROSIS
     Dosage: 44 MCG, SUBCUTANEOUS;  75 %, SUBCUTANEOUS;   22 MCG, SUBCUTANEOUS
     Route: 058
     Dates: start: 20071226, end: 20080101
  2. REBIF [Suspect]
     Indication: MULTIPLE SCLEROSIS
     Dosage: 44 MCG, SUBCUTANEOUS;  75 %, SUBCUTANEOUS;   22 MCG, SUBCUTANEOUS
     Route: 058
     Dates: start: 20080101, end: 20080123
  3. REBIF [Suspect]
     Indication: MULTIPLE SCLEROSIS
     Dosage: 44 MCG, SUBCUTANEOUS;  75 %, SUBCUTANEOUS;   22 MCG, SUBCUTANEOUS
     Route: 058
     Dates: start: 20071101

REACTIONS (6)
  - ASTHENIA [None]
  - BLISTER [None]
  - ERYTHEMA [None]
  - INFLUENZA [None]
  - INJECTION SITE REACTION [None]
  - PAIN [None]
